FAERS Safety Report 21400431 (Version 1)
Quarter: 2022Q3

REPORT INFORMATION
  Report Type: Spontaneous
  Country: US (occurrence: None)
  Receive Date: 20220930
  Receipt Date: 20220930
  Transmission Date: 20221027
  Serious: No
  Sender: FDA-Public Use
  Company Number: None

PATIENT
  Age: 71 Year
  Sex: Female

DRUGS (1)
  1. AJOVY [Suspect]
     Active Substance: FREMANEZUMAB-VFRM
     Indication: Migraine
     Dosage: 225MG MONTHLY SUBCUTANEOUS
     Route: 058
     Dates: start: 20220804

REACTIONS (3)
  - Device leakage [None]
  - Needle issue [None]
  - Product dose omission issue [None]

NARRATIVE: CASE EVENT DATE: 20220912
